FAERS Safety Report 9473100 (Version 2)
Quarter: 2013Q3

REPORT INFORMATION
  Report Type: Spontaneous
  Country: US (occurrence: US)
  Receive Date: 20130823
  Receipt Date: 20130823
  Transmission Date: 20140515
  Serious: Yes (Other)
  Sender: FDA-Public Use
  Company Number: US-BRISTOL-MYERS SQUIBB COMPANY-17431875

PATIENT
  Age: 54 Year
  Sex: Female
  Weight: 80.72 kg

DRUGS (1)
  1. SPRYCEL [Suspect]
     Indication: CHRONIC MYELOID LEUKAEMIA
     Dosage: AT NIGHT
     Route: 048
     Dates: start: 20130221

REACTIONS (2)
  - Headache [Not Recovered/Not Resolved]
  - Diarrhoea [Unknown]
